FAERS Safety Report 15109662 (Version 3)
Quarter: 2018Q3

REPORT INFORMATION
  Report Type: Report from Study
  Country: US (occurrence: US)
  Receive Date: 20180705
  Receipt Date: 20180921
  Transmission Date: 20181010
  Serious: No
  Sender: FDA-Public Use
  Company Number: PHEH2018US024688

PATIENT
  Sex: Female

DRUGS (3)
  1. COSENTYX [Suspect]
     Active Substance: SECUKINUMAB
     Indication: ARTHRITIS
     Dosage: 150 MG, Q4W
     Route: 058
     Dates: start: 20180425
  2. COSENTYX [Suspect]
     Active Substance: SECUKINUMAB
     Indication: PSORIATIC ARTHROPATHY
     Dosage: 150 MG, QW
     Route: 058
     Dates: start: 20180420
  3. COSENTYX [Suspect]
     Active Substance: SECUKINUMAB
     Indication: LYME DISEASE

REACTIONS (6)
  - Hypersensitivity [Unknown]
  - Pain [Unknown]
  - Osteoarthritis [Unknown]
  - Arthralgia [Unknown]
  - Back pain [Unknown]
  - Product use in unapproved indication [Unknown]
